FAERS Safety Report 23255917 (Version 1)
Quarter: 2023Q4

REPORT INFORMATION
  Report Type: Report from Study
  Country: US (occurrence: US)
  Receive Date: 20231204
  Receipt Date: 20231204
  Transmission Date: 20240110
  Serious: Yes (Hospitalization)
  Sender: FDA-Public Use
  Company Number: US-JAZZ PHARMACEUTICALS-2023-US-024034

PATIENT
  Sex: Male

DRUGS (1)
  1. EPIDIOLEX [Suspect]
     Active Substance: CANNABIDIOL
     Indication: Lennox-Gastaut syndrome
     Dosage: 3.6 MILLILITER, BID, (G-TUBE)
     Route: 048
     Dates: start: 202307

REACTIONS (2)
  - Urinary tract infection [Not Recovered/Not Resolved]
  - Rhinovirus infection [Not Recovered/Not Resolved]
